FAERS Safety Report 5891605-X (Version None)
Quarter: 2008Q3

REPORT INFORMATION
  Report Type: 
  Country: None (occurrence: None)
  Receive Date: 20080908
  Receipt Date: 20080627
  Transmission Date: 20090109
  Serious: No
  Sender: FDA-Public Use
  Company Number: 002#2#2008-00550

PATIENT
  Sex: Male

DRUGS (1)
  1. NEUPRO [Suspect]
     Indication: PARKINSON'S DISEASE
     Dosage: MG/24H, 1 IN 1 TRANSDERMAL
     Route: 062
     Dates: start: 20070901

REACTIONS (2)
  - HYPOKINESIA [None]
  - MENTAL DISORDER [None]
